FAERS Safety Report 4297025-6 (Version None)
Quarter: 2004Q1

REPORT INFORMATION
  Report Type: 
  Country: None (occurrence: None)
  Receive Date: 20040213
  Receipt Date: 20040203
  Transmission Date: 20041129
  Serious: Yes (Hospitalization)
  Sender: FDA-Public Use
  Company Number: 2003-06-1769

PATIENT
  Age: 47 Year
  Sex: Male

DRUGS (1)
  1. INTRON A [Suspect]
     Indication: MALIGNANT MELANOMA
     Dosage: SEE IMAGE
     Route: 042
     Dates: start: 20030316

REACTIONS (3)
  - NAUSEA [None]
  - VERTIGO [None]
  - VESTIBULAR DISORDER [None]
